FAERS Safety Report 8372719-1 (Version None)
Quarter: 2012Q2

REPORT INFORMATION
  Report Type: 
  Country: None (occurrence: None)
  Receive Date: 20120521
  Receipt Date: 20120515
  Transmission Date: 20120825
  Serious: Yes (Other)
  Sender: FDA-Public Use
  Company Number: US-BAYER-2012-002909

PATIENT
  Age: 38 Year
  Sex: Female
  Weight: 97.506 kg

DRUGS (8)
  1. YAZ [Suspect]
     Indication: PREMENSTRUAL SYNDROME
     Dosage: UNK
     Route: 048
     Dates: start: 20070101, end: 20100101
  2. LEVOXYL [Concomitant]
     Dosage: 100 MCG
     Dates: start: 20080807, end: 20100918
  3. GLUCOPHAGE [Concomitant]
     Dosage: 500 MG, UNK
     Route: 048
     Dates: start: 20080807, end: 20101005
  4. XANAX [Concomitant]
     Dosage: 2 MG, 1 TO 3 TIMES DAILY
     Route: 048
     Dates: start: 20080926, end: 20100915
  5. VALTREX [Concomitant]
     Dosage: 500 MG TO 1 GM
     Dates: start: 20080718, end: 20100721
  6. LAMICTAL [Concomitant]
     Dosage: UNK UNK, BID
     Route: 048
     Dates: start: 20080108, end: 20090630
  7. RISPERIDONE [Concomitant]
     Dosage: 6 TO 9 MG
     Dates: start: 20081112, end: 20090324
  8. INVEGA [Concomitant]
     Dosage: UNK
     Dates: start: 20081112, end: 20090324

REACTIONS (4)
  - LACUNAR INFARCTION [None]
  - INJURY [None]
  - CEREBROVASCULAR ACCIDENT [None]
  - PAIN [None]
